FAERS Safety Report 14597977 (Version 3)
Quarter: 2018Q2

REPORT INFORMATION
  Report Type: Spontaneous
  Country: US (occurrence: US)
  Receive Date: 20180305
  Receipt Date: 20180504
  Transmission Date: 20180711
  Serious: No
  Sender: FDA-Public Use
  Company Number: US-PFIZER INC-2018088084

PATIENT
  Age: 55 Year
  Sex: Female

DRUGS (3)
  1. ETANERCEPT [Suspect]
     Active Substance: ETANERCEPT
     Dosage: UNK
  2. OXAPROZIN. [Suspect]
     Active Substance: OXAPROZIN
     Dosage: UNK
  3. BENZOCAINE. [Suspect]
     Active Substance: BENZOCAINE
     Dosage: UNK

REACTIONS (1)
  - Drug hypersensitivity [Unknown]
